FAERS Safety Report 5029218-4 (Version None)
Quarter: 2006Q2

REPORT INFORMATION
  Report Type: 
  Country: None (occurrence: None)
  Receive Date: 20060613
  Receipt Date: 20060531
  Transmission Date: 20061013
  Serious: Yes (Disabling, Other)
  Sender: FDA-Public Use
  Company Number: GXKR2006DE03193

PATIENT
  Age: 51 Year
  Sex: Male
  Weight: 70 kg

DRUGS (2)
  1. METRONIDAZOLE [Suspect]
     Indication: DIVERTICULITIS
     Dosage: 400 MG, BID, ORAL
     Route: 048
     Dates: start: 20051126, end: 20051130
  2. CIPROFLOXACIN [Concomitant]

REACTIONS (11)
  - DIFFICULTY IN WALKING [None]
  - DYSGEUSIA [None]
  - DYSSTASIA [None]
  - ERECTILE DYSFUNCTION [None]
  - HEADACHE [None]
  - MICTURITION DISORDER [None]
  - NEUROPATHY PERIPHERAL [None]
  - PAIN [None]
  - PARAESTHESIA [None]
  - VERTIGO [None]
  - VOMITING [None]
